FAERS Safety Report 7773843-4 (Version None)
Quarter: 2011Q3

REPORT INFORMATION
  Report Type: 
  Country: None (occurrence: None)
  Receive Date: 20110923
  Receipt Date: 20110913
  Transmission Date: 20111222
  Serious: Yes (Hospitalization)
  Sender: FDA-Public Use
  Company Number: JP-JNJFOC-20110903308

PATIENT
  Age: 44 Year
  Sex: Male

DRUGS (7)
  1. SENEVACUL [Concomitant]
     Route: 048
  2. RISPERDAL [Suspect]
     Indication: PRODUCT USED FOR UNKNOWN INDICATION
     Route: 048
  3. DEPAKENE [Concomitant]
     Route: 048
  4. ROHYPNOL [Concomitant]
     Route: 065
  5. MAGNESIUM SULFATE [Concomitant]
     Route: 048
  6. LONASEN [Concomitant]
     Route: 048
  7. RISPERDAL CONSTA [Suspect]
     Indication: PRODUCT USED FOR UNKNOWN INDICATION
     Route: 030

REACTIONS (2)
  - GASTRIC ULCER [None]
  - SHOCK HAEMORRHAGIC [None]
